FAERS Safety Report 8593945-2 (Version None)
Quarter: 2012Q3

REPORT INFORMATION
  Report Type: 
  Country: None (occurrence: None)
  Receive Date: 20120814
  Receipt Date: 20120810
  Transmission Date: 20120928
  Serious: No
  Sender: FDA-Public Use
  Company Number: US-BAYER-2012-082532

PATIENT
  Sex: Female

DRUGS (1)
  1. CLIMARA [Suspect]
     Indication: VULVOVAGINAL DRYNESS
     Dosage: 1.0 MG, UNK
     Dates: start: 19910101

REACTIONS (2)
  - VULVOVAGINAL DRYNESS [None]
  - PRODUCT ADHESION ISSUE [None]
